FAERS Safety Report 6589518-3 (Version None)
Quarter: 2010Q1

REPORT INFORMATION
  Report Type: 
  Country: None (occurrence: None)
  Receive Date: 20100212
  Receipt Date: 20100127
  Transmission Date: 20100710
  Serious: Yes (Other)
  Sender: FDA-Public Use
  Company Number: 005637

PATIENT
  Age: 9 Year
  Sex: Male

DRUGS (1)
  1. VIMPAT [Suspect]
     Dosage: (ORAL)
     Route: 048
     Dates: start: 20090901

REACTIONS (1)
  - INTRAOCULAR PRESSURE INCREASED [None]
